FAERS Safety Report 7080407-7 (Version None)
Quarter: 2010Q4

REPORT INFORMATION
  Report Type: 
  Country: None (occurrence: None)
  Receive Date: 20101103
  Receipt Date: 20100702
  Transmission Date: 20110411
  Serious: Yes (Hospitalization, Other)
  Sender: FDA-Public Use
  Company Number: US-BAYER-201013264NA

PATIENT
  Age: 34 Year
  Sex: Female
  Weight: 100 kg

DRUGS (16)
  1. YASMIN [Suspect]
     Indication: PRODUCT USED FOR UNKNOWN INDICATION
     Route: 048
     Dates: start: 20030501
  2. YASMIN [Suspect]
     Route: 048
     Dates: start: 20080201, end: 20090401
  3. YASMIN [Suspect]
     Route: 048
     Dates: start: 20090401
  4. YASMIN [Suspect]
     Route: 048
     Dates: start: 20060401
  5. YAZ [Suspect]
     Indication: PRODUCT USED FOR UNKNOWN INDICATION
     Route: 048
     Dates: start: 20090401
  6. YAZ [Suspect]
     Route: 048
     Dates: start: 20080201, end: 20090401
  7. YAZ [Suspect]
     Route: 048
     Dates: start: 20060401
  8. YAZ [Suspect]
     Route: 048
     Dates: start: 20030501
  9. THYROID MEDICATION [Concomitant]
  10. NSAIDS [Concomitant]
  11. NEXIUM [Concomitant]
     Indication: GASTROOESOPHAGEAL REFLUX DISEASE
  12. CYMBALTA [Concomitant]
     Indication: FIBROMYALGIA
     Dates: start: 20090101
  13. CLONAZEPAM [Concomitant]
     Indication: SLEEP DISORDER
  14. DILAUDID [Concomitant]
     Indication: ABDOMINAL PAIN UPPER
     Dates: start: 20081229
  15. PERCOCET [Concomitant]
     Route: 048
  16. K-LYTE [Concomitant]
     Route: 048

REACTIONS (6)
  - ABDOMINAL PAIN [None]
  - CHOLECYSTITIS CHRONIC [None]
  - CHOLELITHIASIS [None]
  - CHOLESTEROSIS [None]
  - NAUSEA [None]
  - VOMITING [None]
